FAERS Safety Report 11784199 (Version 1)
Quarter: 2015Q4

REPORT INFORMATION
  Report Type: Spontaneous
  Country: CA (occurrence: CA)
  Receive Date: 20151128
  Receipt Date: 20151128
  Transmission Date: 20160305
  Serious: Yes (Hospitalization, Other)
  Sender: FDA-Public Use
  Company Number: CA-JNJFOC-20151117307

PATIENT
  Age: 10 Month
  Sex: Male

DRUGS (5)
  1. ALCOHOL. [Suspect]
     Active Substance: ALCOHOL
     Indication: TEETHING
     Route: 065
  2. INFANTS TYLENOL [Suspect]
     Active Substance: ACETAMINOPHEN
     Route: 048
  3. MOTRIN [Suspect]
     Active Substance: IBUPROFEN
     Indication: TEETHING
     Route: 048
  4. INFANTS TYLENOL [Suspect]
     Active Substance: ACETAMINOPHEN
     Indication: TEETHING
     Route: 048
  5. MOTRIN [Suspect]
     Active Substance: IBUPROFEN
     Route: 048

REACTIONS (3)
  - Unresponsive to stimuli [Unknown]
  - Victim of child abuse [None]
  - Contraindication to medical treatment [Unknown]
